FAERS Safety Report 9173253 (Version 2)
Quarter: 2013Q1

REPORT INFORMATION
  Report Type: Spontaneous
  Country: DE (occurrence: None)
  Receive Date: 20130123
  Receipt Date: 20130204
  Transmission Date: 20140127
  Serious: Yes (Hospitalization, Other)
  Sender: FDA-Public Use
  Company Number: AEDEU201200524

PATIENT
  Age: 58 Year
  Sex: Male
  Weight: 78 kg

DRUGS (1)
  1. GAMUNEX [Suspect]
     Indication: CHRONIC INFLAMMATORY DEMYELINATING POLYRADICULONEUROPATHY
     Dosage: Q3W
     Route: 042
     Dates: start: 20120919, end: 20121212

REACTIONS (5)
  - Tension headache [None]
  - No therapeutic response [None]
  - Chronic inflammatory demyelinating polyradiculoneuropathy [None]
  - Disease progression [None]
  - Influenza like illness [None]
